FAERS Safety Report 22199825 (Version 1)
Quarter: 2023Q2

REPORT INFORMATION
  Report Type: Spontaneous
  Country: SI (occurrence: SI)
  Receive Date: 20230412
  Receipt Date: 20230412
  Transmission Date: 20230721
  Serious: Yes (Other)
  Sender: FDA-Public Use
  Company Number: None

PATIENT
  Age: 54 Year
  Sex: Female
  Weight: 91 kg

DRUGS (1)
  1. NEOTIGASON [Suspect]
     Active Substance: ACITRETIN
     Indication: Psoriasis
     Dosage: 25 MILLIGRAM DAILY; DOSE: 1X 1 TBL/DAY BETWEEN MEAL AND WITH MILK,
     Route: 065
     Dates: start: 202302, end: 20230217

REACTIONS (3)
  - Face oedema [Not Recovered/Not Resolved]
  - Pruritus [Not Recovered/Not Resolved]
  - Urticaria [Not Recovered/Not Resolved]

NARRATIVE: CASE EVENT DATE: 20230217
